FAERS Safety Report 20923978 (Version 1)
Quarter: 2022Q2

REPORT INFORMATION
  Report Type: Spontaneous
  Country: US (occurrence: None)
  Receive Date: 20220606
  Receipt Date: 20220606
  Transmission Date: 20220721
  Serious: No
  Sender: FDA-Public Use
  Company Number: None

PATIENT
  Age: 58 Year
  Sex: Male
  Weight: 71.66 kg

DRUGS (1)
  1. PAXLOVID [Suspect]
     Active Substance: NIRMATRELVIR\RITONAVIR
     Indication: SARS-CoV-2 test positive
     Dosage: 3 DF DOSAGE TWICE A DAY ORAL?
     Route: 048
     Dates: start: 20220602, end: 20220606

REACTIONS (2)
  - SARS-CoV-2 test positive [None]
  - Rash [None]

NARRATIVE: CASE EVENT DATE: 20220606
